FAERS Safety Report 11624631 (Version 1)
Quarter: 2015Q4

REPORT INFORMATION
  Report Type: Report from Study
  Country: US (occurrence: US)
  Receive Date: 20151013
  Receipt Date: 20151013
  Transmission Date: 20160304
  Serious: Yes (Hospitalization, Other)
  Sender: FDA-Public Use
  Company Number: US-ABBVIE-15K-163-1479691-00

PATIENT
  Age: 27 Year
  Sex: Female
  Weight: 59.02 kg

DRUGS (6)
  1. HUMIRA [Suspect]
     Active Substance: ADALIMUMAB
     Route: 058
     Dates: start: 201311
  2. HUMIRA [Suspect]
     Active Substance: ADALIMUMAB
     Indication: CROHN^S DISEASE
     Dosage: A FEW MONTHS
     Route: 058
     Dates: start: 2010, end: 2010
  3. AZATHIOPRINE. [Concomitant]
     Active Substance: AZATHIOPRINE
     Indication: CROHN^S DISEASE
  4. NUVARING [Concomitant]
     Active Substance: ETHINYL ESTRADIOL\ETONOGESTREL
     Indication: CONTRACEPTION
  5. CIMZIA [Suspect]
     Active Substance: CERTOLIZUMAB PEGOL
     Indication: CROHN^S DISEASE
     Route: 065
     Dates: start: 201310, end: 201310
  6. VITAMIN B12 [Concomitant]
     Active Substance: CYANOCOBALAMIN
     Indication: PRODUCT USED FOR UNKNOWN INDICATION

REACTIONS (13)
  - Blood test abnormal [Recovered/Resolved]
  - Postoperative abscess [Recovered/Resolved]
  - Localised intraabdominal fluid collection [Recovered/Resolved]
  - Drug ineffective [Recovered/Resolved]
  - Alopecia [Not Recovered/Not Resolved]
  - Throat tightness [Recovered/Resolved]
  - Intestinal obstruction [Recovered/Resolved]
  - Postoperative abscess [Recovered/Resolved]
  - Pyrexia [Recovered/Resolved]
  - Rash generalised [Recovered/Resolved]
  - Arthritis [Not Recovered/Not Resolved]
  - Post procedural infection [Recovered/Resolved]
  - Abdominal pain upper [Recovered/Resolved]

NARRATIVE: CASE EVENT DATE: 2010
